FAERS Safety Report 14006520 (Version 2)
Quarter: 2017Q4

REPORT INFORMATION
  Report Type: Report from Study
  Country: US (occurrence: US)
  Receive Date: 20170925
  Receipt Date: 20171002
  Transmission Date: 20180321
  Serious: Yes (Other)
  Sender: FDA-Public Use
  Company Number: PHEH2017US030738

PATIENT
  Sex: Male

DRUGS (1)
  1. AZOPT [Suspect]
     Active Substance: BRINZOLAMIDE
     Indication: PRODUCT USED FOR UNKNOWN INDICATION
     Dosage: UNK
     Route: 065

REACTIONS (6)
  - Blood pressure abnormal [Unknown]
  - Intraocular pressure increased [Unknown]
  - Diabetes mellitus [Unknown]
  - Visual impairment [Unknown]
  - Glaucoma [Unknown]
  - Atrial fibrillation [Unknown]
